FAERS Safety Report 5697813-5 (Version None)
Quarter: 2008Q2

REPORT INFORMATION
  Report Type: 
  Country: None (occurrence: None)
  Receive Date: 20080408
  Receipt Date: 20080403
  Transmission Date: 20081010
  Serious: Yes (Hospitalization)
  Sender: FDA-Public Use
  Company Number: FR-BRISTOL-MYERS SQUIBB COMPANY-14137871

PATIENT
  Age: 83 Year
  Sex: Male

DRUGS (8)
  1. SINEMET [Suspect]
     Indication: PARKINSON'S DISEASE
     Dosage: DOSE OF SINEMET FRACTIONED TO 1/2-1/2-1/2-1/2.
  2. HAVLANE [Concomitant]
  3. TRANSIPEG [Concomitant]
     Dosage: IF NEEDED TO 12-APR-2007.
     Dates: end: 20070412
  4. NEXIUM [Concomitant]
     Dates: end: 20070412
  5. ARANESP [Concomitant]
  6. ATARAX [Concomitant]
  7. CACIT D3 [Concomitant]
  8. FORLAX [Concomitant]
     Dosage: FORLAX (MACROGOL 4000) 1/D THEN 2/D.

REACTIONS (4)
  - BUNDLE BRANCH BLOCK RIGHT [None]
  - FALL [None]
  - ORTHOSTATIC HYPOTENSION [None]
  - RENAL FAILURE [None]
